FAERS Safety Report 6739173-4 (Version None)
Quarter: 2010Q2

REPORT INFORMATION
  Report Type: 
  Country: None (occurrence: None)
  Receive Date: 20100525
  Receipt Date: 20100514
  Transmission Date: 20101027
  Serious: Yes (Hospitalization)
  Sender: FDA-Public Use
  Company Number: US-JNJFOC-20100507213

PATIENT
  Sex: Female
  Weight: 50.39 kg

DRUGS (3)
  1. REMICADE [Suspect]
     Indication: INFLAMMATORY BOWEL DISEASE
     Route: 042
  2. BUDESONIDE [Concomitant]
  3. 5-ASA [Concomitant]
     Route: 048

REACTIONS (1)
  - ILEAL STENOSIS [None]
